FAERS Safety Report 7293425-0 (Version None)
Quarter: 2011Q1

REPORT INFORMATION
  Report Type: 
  Country: None (occurrence: None)
  Receive Date: 20110215
  Receipt Date: 20110209
  Transmission Date: 20110831
  Serious: Yes (Other)
  Sender: FDA-Public Use
  Company Number: BR-ELI_LILLY_AND_COMPANY-BR201102002840

PATIENT
  Sex: Female

DRUGS (4)
  1. HUMULIN R [Suspect]
     Dosage: UNK, UNKNOWN
     Route: 065
  2. CLOXAZOLAM [Concomitant]
     Dosage: 1 MG, UNKNOWN
     Route: 065
  3. HUMULIN N [Suspect]
     Dosage: UNK, UNKNOWN
     Route: 065
  4. PURAN T4 [Concomitant]
     Dosage: 50 MG, UNKNOWN
     Route: 065

REACTIONS (4)
  - BLINDNESS [None]
  - RETINAL HAEMORRHAGE [None]
  - RETINAL DETACHMENT [None]
  - CATARACT OPERATION [None]
